FAERS Safety Report 24116511 (Version 1)
Quarter: 2024Q3

REPORT INFORMATION
  Report Type: Spontaneous
  Country: US (occurrence: US)
  Receive Date: 20240722
  Receipt Date: 20240722
  Transmission Date: 20241016
  Serious: No
  Sender: ASTELLAS
  Company Number: US-ASTELLAS-2024US009067

PATIENT
  Age: 88 Year
  Sex: Male

DRUGS (2)
  1. MYRBETRIQ [Suspect]
     Active Substance: MIRABEGRON
     Indication: Polyuria
     Route: 048
     Dates: end: 20240320
  2. MYRBETRIQ [Suspect]
     Active Substance: MIRABEGRON
     Dosage: 50 MG, UNKNOWN FREQ. 2 WEEKS AGO (EXACT START DATE WAS UNKNOWN).
     Route: 048
     Dates: start: 202404

REACTIONS (1)
  - Arthralgia [Recovered/Resolved]
